FAERS Safety Report 5855973-7 (Version None)
Quarter: 2008Q3

REPORT INFORMATION
  Report Type: 
  Country: None (occurrence: None)
  Receive Date: 20080825
  Receipt Date: 20080818
  Transmission Date: 20090109
  Serious: Yes (Life-Threatening, Hospitalization)
  Sender: FDA-Public Use
  Company Number: GB-NOVOPROD-278675

PATIENT
  Age: 55 Year
  Sex: Male

DRUGS (7)
  1. LEVEMIR [Suspect]
     Indication: DIABETES MELLITUS
  2. NOVORAPID [Suspect]
     Indication: DIABETES MELLITUS
  3. DIAZEPAM [Suspect]
  4. DICLOFENAC [Suspect]
  5. LANSOPRAZOLE [Suspect]
  6. RAMIPRIL [Suspect]
  7. ROSUVASTATIN [Suspect]

REACTIONS (1)
  - TOXIC EPIDERMAL NECROLYSIS [None]
